FAERS Safety Report 19726431 (Version 1)
Quarter: 2021Q3

REPORT INFORMATION
  Report Type: Spontaneous
  Country: US (occurrence: US)
  Receive Date: 20210820
  Receipt Date: 20210820
  Transmission Date: 20211014
  Serious: No
  Sender: FDA-Public Use
  Company Number: US-LUPIN PHARMACEUTICALS INC.-2021-14578

PATIENT
  Age: 59 Year
  Sex: Female

DRUGS (1)
  1. FENOFIBRATE TABLETS USP 48 MG [Suspect]
     Active Substance: FENOFIBRATE
     Indication: PRODUCT USED FOR UNKNOWN INDICATION
     Dosage: 48 MILLIGRAM, QD (WHITE, OVAL TABLET) (1 TABLET ONCE DAILY)
     Route: 048
     Dates: start: 2021

REACTIONS (2)
  - Myalgia [Unknown]
  - Product quality issue [Unknown]

NARRATIVE: CASE EVENT DATE: 2021
